FAERS Safety Report 19748522 (Version 1)
Quarter: 2021Q3

REPORT INFORMATION
  Report Type: Spontaneous
  Country: CA (occurrence: CA)
  Receive Date: 20210825
  Receipt Date: 20210825
  Transmission Date: 20211014
  Serious: No
  Sender: FDA-Public Use
  Company Number: None

PATIENT
  Age: 20 Year
  Sex: Male
  Weight: 65.25 kg

DRUGS (1)
  1. METHYLPHENID HCL ER 54MG. APO?METHYLPENIDATE ER 54MG [Suspect]
     Active Substance: METHYLPHENIDATE HYDROCHLORIDE
     Indication: ATTENTION DEFICIT HYPERACTIVITY DISORDER
     Dosage: ?          QUANTITY:30 TABLET(S);?
     Route: 048

REACTIONS (5)
  - Anxiety [None]
  - Heart rate increased [None]
  - Insomnia [None]
  - Decreased appetite [None]
  - Product substitution issue [None]

NARRATIVE: CASE EVENT DATE: 20210824
